FAERS Safety Report 23263346 (Version 1)
Quarter: 2023Q4

REPORT INFORMATION
  Report Type: Spontaneous
  Country: FR (occurrence: None)
  Receive Date: 20231204
  Receipt Date: 20231204
  Transmission Date: 20240109
  Serious: Yes (Disabling)
  Sender: FDA-Public Use
  Company Number: None

PATIENT
  Age: 59 Year
  Sex: Male
  Weight: 64 kg

DRUGS (1)
  1. CIPROFLOXACIN [Suspect]
     Active Substance: CIPROFLOXACIN
     Indication: Prostatitis
     Dosage: 1 TBLET DAILY ORAL
     Route: 048
     Dates: start: 20220610, end: 20220616

REACTIONS (9)
  - Tendonitis [None]
  - Inguinal hernia [None]
  - Rotator cuff syndrome [None]
  - Periarthritis [None]
  - Tendonitis [None]
  - Asthenia [None]
  - Arrhythmia [None]
  - Plantar fasciitis [None]
  - Fatigue [None]

NARRATIVE: CASE EVENT DATE: 20220630
